FAERS Safety Report 12932638 (Version 2)
Quarter: 2017Q4

REPORT INFORMATION
  Report Type: Report from Study
  Country: AU (occurrence: AU)
  Receive Date: 20161111
  Receipt Date: 20171212
  Transmission Date: 20180320
  Serious: Yes (Other)
  Sender: FDA-Public Use
  Company Number: PHHY2016AU042113

PATIENT
  Age: 67 Year
  Sex: Female
  Weight: 65 kg

DRUGS (4)
  1. TRAMETINIB [Suspect]
     Active Substance: TRAMETINIB
     Indication: LUNG ADENOCARCINOMA
     Dosage: 2 MG, QD
     Route: 048
     Dates: start: 20160325, end: 20160417
  2. DABRAFENIB [Suspect]
     Active Substance: DABRAFENIB
     Indication: LUNG ADENOCARCINOMA
     Dosage: 150 MG, BID
     Route: 048
     Dates: start: 20160325, end: 20160417
  3. DABRAFENIB [Suspect]
     Active Substance: DABRAFENIB
     Indication: NON-SMALL CELL LUNG CANCER
     Dosage: 150 MG, BID
     Route: 048
     Dates: start: 20160917
  4. TRAMETINIB [Suspect]
     Active Substance: TRAMETINIB
     Indication: NON-SMALL CELL LUNG CANCER
     Dosage: 2 MG, QD
     Route: 048
     Dates: start: 20160917

REACTIONS (6)
  - Malaise [Recovering/Resolving]
  - Product use in unapproved indication [Unknown]
  - Therapeutic response decreased [Unknown]
  - Headache [Recovering/Resolving]
  - Malignant neoplasm progression [Unknown]
  - Pyrexia [Recovering/Resolving]

NARRATIVE: CASE EVENT DATE: 20160325
